FAERS Safety Report 7392633-8 (Version None)
Quarter: 2011Q1

REPORT INFORMATION
  Report Type: 
  Country: None (occurrence: None)
  Receive Date: 20110330
  Receipt Date: 20110330
  Transmission Date: 20110831
  Serious: Yes (Hospitalization)
  Sender: FDA-Public Use
  Company Number: None

PATIENT
  Sex: Female
  Weight: 3.9 kg

DRUGS (3)
  1. CARBOPLATIN [Suspect]
     Dosage: 43MG
  2. ETOPOSIDE [Suspect]
     Dosage: 14 MG
  3. DOXORUBICIN HCL [Suspect]
     Dosage: 4.6 MG

REACTIONS (12)
  - BLOOD PRESSURE DECREASED [None]
  - SINUS BRADYCARDIA [None]
  - DISSEMINATED INTRAVASCULAR COAGULATION [None]
  - PALLOR [None]
  - RETROPERITONEAL HAEMORRHAGE [None]
  - MYDRIASIS [None]
  - ABDOMINAL DISTENSION [None]
  - PUPIL FIXED [None]
  - TACHYPNOEA [None]
  - UNRESPONSIVE TO STIMULI [None]
  - VENTRICULAR TACHYCARDIA [None]
  - LIVEDO RETICULARIS [None]
